FAERS Safety Report 5704807-X (Version None)
Quarter: 2008Q2

REPORT INFORMATION
  Report Type: 
  Country: None (occurrence: None)
  Receive Date: 20080414
  Receipt Date: 20080402
  Transmission Date: 20081010
  Serious: Yes (Hospitalization)
  Sender: FDA-Public Use
  Company Number: US-AMGEN-STX272653

PATIENT
  Sex: Female

DRUGS (2)
  1. ENBREL [Suspect]
     Indication: RHEUMATOID ARTHRITIS
     Route: 058
     Dates: start: 20080308
  2. METHOTREXATE [Concomitant]
     Route: 065
     Dates: start: 20060901

REACTIONS (2)
  - NAUSEA [None]
  - SMALL INTESTINAL OBSTRUCTION [None]
